FAERS Safety Report 25150118 (Version 12)
Quarter: 2025Q4

REPORT INFORMATION
  Report Type: Report from Study
  Country: US (occurrence: US)
  Receive Date: 20250402
  Receipt Date: 20251128
  Transmission Date: 20260117
  Serious: Yes (Other)
  Sender: ACADIA PHARMACEUTICALS
  Company Number: US-ACADIA PHARMACEUTICALS INC.-ACA-2025-PIM-003601

PATIENT
  Sex: Male
  Weight: 97.7 kg

DRUGS (24)
  1. NUPLAZID [Suspect]
     Active Substance: PIMAVANSERIN TARTRATE
     Indication: Parkinson^s disease psychosis
     Dosage: 34 MILLIGRAM, QD (QHS) (QPM)
     Route: 048
     Dates: start: 20250312
  2. NUPLAZID [Suspect]
     Active Substance: PIMAVANSERIN TARTRATE
     Indication: Dementia
  3. ATORVASTATIN [Concomitant]
     Active Substance: ATORVASTATIN
     Dosage: 1 DOSAGE FORM (AT BEDTIME, MAINTENANCE)
     Route: 048
  4. MIDODRINE [Concomitant]
     Active Substance: MIDODRINE
     Dosage: 5 MG (1 DOSAGE FORM (QAM, MAINTENANCE)
     Route: 048
  5. MIDODRINE [Concomitant]
     Active Substance: MIDODRINE
     Dosage: 1 DOSAGE FORM Q8H, PRN AS INDICATED
     Route: 048
  6. MYRBETRIQ [Concomitant]
     Active Substance: MIRABEGRON
     Dosage: 1 DOSAGE FORM, QD (MAINTENANCE)
     Route: 048
  7. FAMOTIDINE [Concomitant]
     Active Substance: FAMOTIDINE
     Dosage: 1 DOSAGE FORM, BID (MAINTENANCE)
     Route: 048
  8. LEVOTHYROXINE [Concomitant]
     Active Substance: LEVOTHYROXINE
     Dosage: 1 DOSAGE FORM, QD (MAINTENANCE)
     Route: 048
  9. RIVASTIGMINE [Concomitant]
     Active Substance: RIVASTIGMINE
     Dosage: 1 DOSAGE FORM (PATCH) QD, 13.3 MG/24HR (MAINTENANCE)
     Route: 061
  10. ESCITALOPRAM [Concomitant]
     Active Substance: ESCITALOPRAM OXALATE
     Dosage: 1 DOSAGE FORM, QD (MAINTENANCE)
     Route: 048
  11. ASPIRIN [Concomitant]
     Active Substance: ASPIRIN
     Dosage: 1 DOSAGE FORM, QD (MAINTENANCE)
     Route: 048
  12. ALFUZOSIN [Concomitant]
     Active Substance: ALFUZOSIN
     Dosage: 1 DOSAGE FORM, QD (MAINTENANCE)
     Route: 048
  13. TRAZODONE [Concomitant]
     Active Substance: TRAZODONE HYDROCHLORIDE
     Dosage: 2 DOSAGE FORM (AT BEDTIME, MAINTENANCE)
     Route: 048
  14. CARBIDOPA\LEVODOPA [Concomitant]
     Active Substance: CARBIDOPA\LEVODOPA
     Dosage: 1 DOSAGE FORM, QD (Q24H)
     Route: 048
  15. CLOZAPINE [Concomitant]
     Active Substance: CLOZAPINE
     Dosage: 2 DOSAGE FORM (AT BEDTIME, MAINTENANCE, 12.5 THIS WEEK GOING TO 0)
     Route: 048
  16. CARBIDOPA\LEVODOPA [Concomitant]
     Active Substance: CARBIDOPA\LEVODOPA
     Dosage: 2 DOSAGE FORM, QID (MAINTENANCE)
     Route: 048
  17. VITAMIN D3 [Concomitant]
     Active Substance: CHOLECALCIFEROL
     Dosage: 1 DOSAGE FORM, QD (MAINTENANCE)
     Route: 048
  18. DESONIDE [Concomitant]
     Active Substance: DESONIDE
     Indication: Prophylaxis
     Dosage: 1 APP, BID (PRN, MAINTENANCE)
     Route: 061
  19. FLUOCINONIDE [Concomitant]
     Active Substance: FLUOCINONIDE
     Dosage: (1 APP, QD, MAINTENANCE)
     Route: 061
  20. PUFA [Concomitant]
     Dosage: 1 DOSAGE FORM, QD (MAINTENANCE)
     Route: 048
  21. MELATONIN [Concomitant]
     Active Substance: MELATONIN
     Dosage: 1 DOSAGE FORM, QD (AT BEDTIME, MAINTENANCE)
     Route: 048
  22. POLYETHYLENE GLYCOL 3350 [Concomitant]
     Active Substance: POLYETHYLENE GLYCOL 3350
     Dosage: 17 GRAM, QD (MAINTENANCE, DISSOLVE IN WATER OR JUICE)
     Route: 048
  23. KETOCONAZOLE [Concomitant]
     Active Substance: KETOCONAZOLE
     Dosage: UNK (1 APP, TOPICAL, 2X/WK, MAINTENANCE)
     Route: 061
  24. VITAMINS NOS [Concomitant]
     Active Substance: VITAMINS
     Dosage: 1 DOSAGE FORM, QD
     Route: 048

REACTIONS (3)
  - Dementia [Not Recovered/Not Resolved]
  - Restlessness [Not Recovered/Not Resolved]
  - Oedema peripheral [Recovering/Resolving]

NARRATIVE: CASE EVENT DATE: 20250101
